FAERS Safety Report 24032317 (Version 1)
Quarter: 2024Q2

REPORT INFORMATION
  Report Type: Spontaneous
  Country: US (occurrence: US)
  Receive Date: 20240630
  Receipt Date: 20240630
  Transmission Date: 20240716
  Serious: Yes (Death, Other)
  Sender: FDA-Public Use
  Company Number: US-NOVITIUMPHARMA-2024USNVP01097

PATIENT
  Sex: Female

DRUGS (12)
  1. DEXAMETHASONE [Suspect]
     Active Substance: DEXAMETHASONE
     Indication: B-cell type acute leukaemia
  2. PEGASPARGASE [Concomitant]
     Active Substance: PEGASPARGASE
     Indication: B-cell type acute leukaemia
  3. VINCRISTINE [Concomitant]
     Active Substance: VINCRISTINE
     Indication: B-cell type acute leukaemia
  4. METHOTREXATE [Concomitant]
     Active Substance: METHOTREXATE
     Indication: B-cell type acute leukaemia
     Dosage: HIGH DOSE
  5. MERCAPTOPURINE [Concomitant]
     Active Substance: MERCAPTOPURINE
     Indication: B-cell type acute leukaemia
  6. FLUDARABINE [Concomitant]
     Active Substance: FLUDARABINE PHOSPHATE
     Indication: B-cell type acute leukaemia
  7. CYCLOPHOSPHAMIDE [Concomitant]
     Active Substance: CYCLOPHOSPHAMIDE
     Indication: B-cell type acute leukaemia
  8. CYCLOPHOSPHAMIDE [Concomitant]
     Active Substance: CYCLOPHOSPHAMIDE
  9. TISAGENLECLEUCEL [Concomitant]
     Active Substance: TISAGENLECLEUCEL
     Indication: B-cell type acute leukaemia
  10. INOTUZUMAB OZOGAMICIN [Concomitant]
     Active Substance: INOTUZUMAB OZOGAMICIN
     Indication: B-cell type acute leukaemia
  11. DOXORUBICIN [Concomitant]
     Active Substance: DOXORUBICIN
     Indication: B-cell type acute leukaemia
  12. CYTARABINE [Concomitant]
     Active Substance: CYTARABINE
     Indication: B-cell type acute leukaemia

REACTIONS (4)
  - Alpha haemolytic streptococcal infection [Fatal]
  - Meningitis bacterial [Fatal]
  - Escherichia bacteraemia [Fatal]
  - Drug ineffective [Fatal]
